FAERS Safety Report 15740872 (Version 1)
Quarter: 2018Q4

REPORT INFORMATION
  Report Type: Spontaneous
  Country: DE (occurrence: DE)
  Receive Date: 20181219
  Receipt Date: 20181219
  Transmission Date: 20190205
  Serious: Yes (Other)
  Sender: FDA-Public Use
  Company Number: PHHY2018DE188196

PATIENT
  Age: 31 Year
  Sex: Female
  Weight: 100 kg

DRUGS (1)
  1. AZITHROMYCIN ANHYDROUS. [Suspect]
     Active Substance: AZITHROMYCIN ANHYDROUS
     Dosage: 500 MG, QD (1 MAL 500MG AN 3 TAGEN)
     Route: 048
     Dates: start: 20181127, end: 20181129

REACTIONS (5)
  - Nausea [Recovered/Resolved]
  - Loss of consciousness [Recovering/Resolving]
  - Myalgia [Recovered/Resolved]
  - Muscle twitching [Recovered/Resolved]
  - Abdominal pain lower [Recovering/Resolving]

NARRATIVE: CASE EVENT DATE: 20181128
